FAERS Safety Report 14768291 (Version 1)
Quarter: 2018Q2

REPORT INFORMATION
  Report Type: Spontaneous
  Country: DK (occurrence: DK)
  Receive Date: 20180417
  Receipt Date: 20180417
  Transmission Date: 20180711
  Serious: Yes (Hospitalization)
  Sender: FDA-Public Use
  Company Number: DK-TEVA-2018-DK-881207

PATIENT
  Age: 73 Year
  Sex: Female

DRUGS (4)
  1. OXYCODONE TEVA [Suspect]
     Active Substance: OXYCODONE HYDROCHLORIDE
     Indication: PSORIATIC ARTHROPATHY
     Dosage: STYRKE: 5 MG
     Route: 048
  2. SPIRONOLACTONE ^ACCORD^ [Suspect]
     Active Substance: SPIRONOLACTONE
     Indication: OEDEMA
     Dosage: STYRKE: 50 MG
     Route: 048
     Dates: start: 20170803, end: 20171128
  3. GEMADOL RETARD [Suspect]
     Active Substance: TRAMADOL HYDROCHLORIDE
     Indication: PAIN
     Dosage: STYRKE: 50 MG
     Route: 048
     Dates: start: 20171120, end: 20171128
  4. DICLON [Concomitant]
     Active Substance: DICLOFENAC SODIUM
     Indication: PAIN
     Dosage: STYRKE: 75 MG
     Route: 048
     Dates: start: 20160902

REACTIONS (4)
  - Ankle fracture [Not Recovered/Not Resolved]
  - Syncope [Not Recovered/Not Resolved]
  - Fall [Not Recovered/Not Resolved]
  - Hyponatraemia [Recovering/Resolving]

NARRATIVE: CASE EVENT DATE: 20171127
